FAERS Safety Report 13306342 (Version 2)
Quarter: 2017Q2

REPORT INFORMATION
  Report Type: Report from Study
  Country: AU (occurrence: AU)
  Receive Date: 20170308
  Receipt Date: 20170522
  Transmission Date: 20170830
  Serious: Yes (Hospitalization, Other)
  Sender: FDA-Public Use
  Company Number: AU-BAYER-2015-331426

PATIENT
  Age: 64 Year
  Sex: Female

DRUGS (9)
  1. ADEMPAS [Suspect]
     Active Substance: RIOCIGUAT
     Indication: PULMONARY HYPERTENSION
     Dosage: 0.5 MG, QD
     Route: 048
  2. ADEMPAS [Suspect]
     Active Substance: RIOCIGUAT
     Indication: PULMONARY HYPERTENSION
     Dosage: 1.5 MG, TID
     Route: 048
  3. LYRICA [Suspect]
     Active Substance: PREGABALIN
     Dosage: UNK
  4. ADEMPAS [Suspect]
     Active Substance: RIOCIGUAT
     Indication: PULMONARY HYPERTENSION
     Dosage: 0.5 MG, TID
     Route: 048
  5. ADEMPAS [Suspect]
     Active Substance: RIOCIGUAT
     Indication: PULMONARY HYPERTENSION
     Dosage: 0.5 MG, BID
     Route: 048
     Dates: start: 20150605
  6. ADEMPAS [Suspect]
     Active Substance: RIOCIGUAT
     Indication: PULMONARY HYPERTENSION
     Dosage: 1 MG, TID
     Route: 048
  7. ADEMPAS [Suspect]
     Active Substance: RIOCIGUAT
     Indication: PULMONARY HYPERTENSION
     Dosage: 0.5 MG, TID
  8. ADEMPAS [Suspect]
     Active Substance: RIOCIGUAT
     Indication: PULMONARY HYPERTENSION
     Dosage: 0.5 MG, BID
     Route: 048
     Dates: start: 2015
  9. LASIX [Concomitant]
     Active Substance: FUROSEMIDE
     Dosage: 20 MG, QD

REACTIONS (35)
  - Cholelithiasis [None]
  - Urinary tract infection [None]
  - Feeling abnormal [None]
  - Malaise [None]
  - Renal failure [None]
  - Systemic lupus erythematosus [None]
  - Abdominal discomfort [None]
  - Flatulence [None]
  - Dyspepsia [None]
  - Hypotension [Not Recovered/Not Resolved]
  - Drug intolerance [None]
  - Inflammation [None]
  - Arthritis [None]
  - Gastritis [None]
  - Systemic lupus erythematosus [Not Recovered/Not Resolved]
  - Diarrhoea [None]
  - Nocturia [None]
  - Incorrect dosage administered [None]
  - Peripheral swelling [None]
  - Alopecia [None]
  - Underdose [Unknown]
  - Cardiac failure [None]
  - Pain in extremity [Not Recovered/Not Resolved]
  - Eructation [None]
  - Gastrointestinal sounds abnormal [None]
  - Unintentional medical device removal [None]
  - Nausea [None]
  - Herpes zoster [None]
  - Adverse drug reaction [None]
  - Blood pressure decreased [Not Recovered/Not Resolved]
  - Dizziness [Not Recovered/Not Resolved]
  - Nodule [Not Recovered/Not Resolved]
  - Gastric pH decreased [None]
  - Orthostatic hypotension [None]
  - Vomiting [None]

NARRATIVE: CASE EVENT DATE: 20150605
